FAERS Safety Report 20665874 (Version 2)
Quarter: 2023Q4

REPORT INFORMATION
  Report Type: Spontaneous
  Country: GB (occurrence: GB)
  Receive Date: 20220402
  Receipt Date: 20231105
  Transmission Date: 20240109
  Serious: Yes (Hospitalization)
  Sender: FDA-Public Use
  Company Number: GB-NOVARTISPH-NVSC2022GB073868

PATIENT
  Age: 80 Year
  Sex: Female

DRUGS (2)
  1. TAFINLAR [Suspect]
     Active Substance: DABRAFENIB MESYLATE
     Indication: Metastatic neoplasm
     Dosage: UNK (START DATE WAS 15 MAR)
     Route: 065
  2. MEKINIST [Suspect]
     Active Substance: TRAMETINIB DIMETHYL SULFOXIDE
     Indication: Metastatic neoplasm
     Dosage: UNK (START DATE WAS 15 MAR)
     Route: 065

REACTIONS (4)
  - Body temperature increased [Unknown]
  - Tongue ulceration [Unknown]
  - Chills [Unknown]
  - Rash [Unknown]
